FAERS Safety Report 24644861 (Version 1)
Quarter: 2024Q4

REPORT INFORMATION
  Report Type: Report from Study
  Country: US (occurrence: US)
  Receive Date: 20241121
  Receipt Date: 20241121
  Transmission Date: 20250114
  Serious: No
  Sender: BIOVITRUM
  Company Number: US-BIOVITRUM-2024-US-014938

PATIENT
  Age: 41 Year
  Sex: Female

DRUGS (1)
  1. DOPTELET [Suspect]
     Active Substance: AVATROMBOPAG MALEATE
     Indication: Thrombocytopenia
     Dosage: 20 MG, DAILY
     Route: 048
     Dates: start: 202408

REACTIONS (1)
  - Feeling abnormal [Recovering/Resolving]
